FAERS Safety Report 4277686-8 (Version None)
Quarter: 2004Q1

REPORT INFORMATION
  Report Type: 
  Country: None (occurrence: None)
  Receive Date: 20040121
  Receipt Date: 20040113
  Transmission Date: 20041129
  Serious: Yes (Death, Life-Threatening, Hospitalization)
  Sender: FDA-Public Use
  Company Number: 200410094DE

PATIENT
  Age: 40 Year
  Sex: Female
  Weight: 55 kg

DRUGS (20)
  1. LASIX [Suspect]
     Indication: ASCITES
     Dosage: 20-20-0 MG BID PO
     Route: 048
     Dates: start: 20011210, end: 20011220
  2. LASIX [Suspect]
     Indication: ASCITES
     Dosage: IRR PO
     Route: 048
     Dates: start: 20021221, end: 20020107
  3. ACTRAPID [Concomitant]
  4. GLUCOSE [Concomitant]
  5. TAZOBAC [Concomitant]
  6. MULTIVITAMIN [Concomitant]
  7. INTRALIPID [Concomitant]
  8. FRAXIPARIN [Concomitant]
  9. RED BLOOD CELLS [Concomitant]
  10. ALDACTONE [Concomitant]
  11. UDC 250 HEXAL [Concomitant]
  12. BIFITERAL SIRUP [Concomitant]
  13. HEPA-MERZ [Concomitant]
  14. LEGALON [Concomitant]
  15. PANTOZOL [Concomitant]
  16. ZINKOROTAT [Concomitant]
  17. CALCIMAGON [Concomitant]
  18. MILGAMMA [Concomitant]
  19. PREDNISOLONE [Concomitant]
  20. TWINRIX [Concomitant]

REACTIONS (6)
  - CARDIAC FAILURE [None]
  - CONJUNCTIVITIS [None]
  - HAEMORRHAGE [None]
  - HEPATIC CIRRHOSIS [None]
  - SHOCK [None]
  - TOXIC EPIDERMAL NECROLYSIS [None]
